FAERS Safety Report 7252168-X (Version None)
Quarter: 2011Q1

REPORT INFORMATION
  Report Type: 
  Country: None (occurrence: None)
  Receive Date: 20110129
  Receipt Date: 20100329
  Transmission Date: 20110831
  Serious: No
  Sender: FDA-Public Use
  Company Number: US-ABBOTT-10P-163-0636325-00

PATIENT
  Sex: Female
  Weight: 68.1 kg

DRUGS (4)
  1. MEDROL [Concomitant]
     Indication: RHEUMATOID ARTHRITIS
  2. METHYLPREDNISOLONE [Concomitant]
     Indication: RHEUMATOID ARTHRITIS
  3. UNKNOWN OTHER MEDICATIONS [Concomitant]
     Indication: PRODUCT USED FOR UNKNOWN INDICATION
     Dosage: THE PATIENT STATED THAT SHE HAD MANY OTHER MEDICATIONS, BUT DECLINED TO ELABORATE.
  4. HUMIRA [Suspect]
     Indication: RHEUMATOID ARTHRITIS
     Route: 058

REACTIONS (1)
  - PSORIASIS [None]
